FAERS Safety Report 10741405 (Version 1)
Quarter: 2015Q1

REPORT INFORMATION
  Report Type: Spontaneous
  Country: US (occurrence: None)
  Receive Date: 20150123
  Receipt Date: 20150123
  Transmission Date: 20150721
  Serious: Yes (Hospitalization)
  Sender: FDA-Public Use
  Company Number: None

PATIENT
  Age: 77 Year
  Sex: Male
  Weight: 100 kg

DRUGS (2)
  1. CASODEX [Suspect]
     Active Substance: BICALUTAMIDE
     Dates: end: 20121130
  2. ZOLADEX [Suspect]
     Active Substance: GOSERELIN ACETATE
     Dates: end: 20140830

REACTIONS (6)
  - Disease progression [None]
  - Radiation proctitis [None]
  - Mitral valve stenosis [None]
  - Haemorrhoids [None]
  - Pleural effusion [None]
  - Rectal haemorrhage [None]

NARRATIVE: CASE EVENT DATE: 20141113
